FAERS Safety Report 8028771-6 (Version None)
Quarter: 2012Q1

REPORT INFORMATION
  Report Type: 
  Country: None (occurrence: None)
  Receive Date: 20120106
  Receipt Date: 20111228
  Transmission Date: 20120608
  Serious: Yes (Hospitalization, Other)
  Sender: FDA-Public Use
  Company Number: US-MERCK-1005USA03723

PATIENT
  Age: 49 Year
  Sex: Female

DRUGS (2)
  1. FOSAMAX [Suspect]
     Indication: OSTEOPOROSIS
     Route: 048
     Dates: start: 20011119, end: 20080705
  2. ALENDRONATE SODIUM [Suspect]
     Indication: OSTEOPOROSIS
     Route: 048
     Dates: start: 20080706, end: 20090701

REACTIONS (25)
  - RHEUMATOID ARTHRITIS [None]
  - ILIOTIBIAL BAND SYNDROME [None]
  - FEMUR FRACTURE [None]
  - LOWER LIMB FRACTURE [None]
  - OOPHORECTOMY [None]
  - HYPERCHOLESTEROLAEMIA [None]
  - LOW TURNOVER OSTEOPATHY [None]
  - BRONCHITIS [None]
  - FALL [None]
  - LIMB DISCOMFORT [None]
  - TENDONITIS [None]
  - CONGENITAL KNEE DEFORMITY [None]
  - PAIN IN EXTREMITY [None]
  - BACK PAIN [None]
  - RADIUS FRACTURE [None]
  - GOITRE [None]
  - DYSPNOEA [None]
  - BURSITIS [None]
  - ARTHRALGIA [None]
  - FOOT FRACTURE [None]
  - PALPITATIONS [None]
  - MENORRHAGIA [None]
  - ACUTE SINUSITIS [None]
  - SNORING [None]
  - HYPOTHYROIDISM [None]
